FAERS Safety Report 7740367-X (Version None)
Quarter: 2011Q3

REPORT INFORMATION
  Report Type: 
  Country: None (occurrence: None)
  Receive Date: 20110909
  Receipt Date: 20110829
  Transmission Date: 20111222
  Serious: Yes (Life-Threatening, Hospitalization, Disabling, Other)
  Sender: FDA-Public Use
  Company Number: US-BAYER-201013648NA

PATIENT
  Sex: Female
  Weight: 78 kg

DRUGS (10)
  1. SILVER COLLOIDAL [Concomitant]
     Dosage: UNK
     Dates: start: 20070101, end: 20080201
  2. AMBIEN [Concomitant]
     Indication: INSOMNIA
  3. YAZ [Suspect]
     Indication: ACNE
     Dosage: UNK
     Route: 048
     Dates: start: 20070101, end: 20080201
  4. MOLYBDENUM [Concomitant]
     Indication: HYPERSENSITIVITY
  5. YAZ [Suspect]
     Indication: PREMENSTRUAL SYNDROME
     Dosage: UNK
     Route: 048
     Dates: start: 20081001, end: 20081201
  6. SILVER COLLOIDAL [Concomitant]
     Dosage: UNK
  7. SONATA [Concomitant]
  8. LIPITOR [Concomitant]
  9. YAZ [Suspect]
     Indication: MENSTRUATION IRREGULAR
  10. ELAVIL [Concomitant]

REACTIONS (6)
  - ORGAN FAILURE [None]
  - GLOMERULONEPHRITIS MINIMAL LESION [None]
  - NEPHRITIC SYNDROME [None]
  - ABASIA [None]
  - RENAL FAILURE ACUTE [None]
  - PARESIS [None]
